FAERS Safety Report 10079683 (Version 1)
Quarter: 2014Q2

REPORT INFORMATION
  Report Type: Spontaneous
  Country: US (occurrence: US)
  Receive Date: 20140415
  Receipt Date: 20140415
  Transmission Date: 20141212
  Serious: Yes (Death, Hospitalization, Other)
  Sender: FDA-Public Use
  Company Number: US-ROXANE LABORATORIES, INC.-2014-RO-00613RO

PATIENT
  Age: 79 Year
  Sex: Female
  Weight: 73 kg

DRUGS (11)
  1. DEXAMETHASONE [Suspect]
     Indication: PRODUCT USED FOR UNKNOWN INDICATION
     Route: 065
  2. PONATINIB [Suspect]
     Indication: ACUTE LYMPHOCYTIC LEUKAEMIA
     Dosage: COMPASSIONATE USE
     Route: 048
     Dates: start: 20140104, end: 20140116
  3. FAMVIR [Concomitant]
     Route: 065
  4. ALLOPURINOL [Concomitant]
     Route: 065
  5. LASIX [Concomitant]
     Route: 065
  6. AMLODIPINE [Concomitant]
     Route: 065
  7. BACTRIM [Concomitant]
     Route: 065
  8. XANAX [Concomitant]
     Route: 065
  9. DIGOXIN [Concomitant]
     Route: 065
  10. METOPROLOL [Concomitant]
     Route: 065
  11. ADVAIR [Concomitant]
     Route: 065

REACTIONS (13)
  - Death [Fatal]
  - Pneumonia [Recovered/Resolved]
  - Cardiac failure congestive [Unknown]
  - Fluid overload [Recovered/Resolved]
  - Pleural effusion [Recovered/Resolved]
  - Oedema peripheral [Recovered/Resolved]
  - Asthenia [Recovered/Resolved]
  - Mental status changes [Recovered/Resolved]
  - Urinary retention [Unknown]
  - Transaminases increased [Unknown]
  - Hyperglycaemia [Recovered/Resolved]
  - Fatigue [Recovered/Resolved]
  - Hypertension [Unknown]
